FAERS Safety Report 21192887 (Version 1)
Quarter: 2022Q3

REPORT INFORMATION
  Report Type: Spontaneous
  Country: US (occurrence: US)
  Receive Date: 20220810
  Receipt Date: 20220810
  Transmission Date: 20221026
  Serious: No
  Sender: FDA-Public Use
  Company Number: US-Blueprint Medicines Corporation-323

PATIENT
  Sex: Female

DRUGS (1)
  1. AYVAKIT [Suspect]
     Active Substance: AVAPRITINIB
     Indication: Gastrointestinal stromal tumour
     Route: 048
     Dates: start: 20220414

REACTIONS (6)
  - Ephelides [Unknown]
  - Pigmentation disorder [Unknown]
  - Photosensitivity reaction [Unknown]
  - Sunburn [Unknown]
  - Vomiting [Unknown]
  - Product dose omission issue [Unknown]
